FAERS Safety Report 15018301 (Version 1)
Quarter: 2018Q2

REPORT INFORMATION
  Report Type: Spontaneous
  Country: US (occurrence: US)
  Receive Date: 20180523
  Receipt Date: 20180523
  Transmission Date: 20180711
  Serious: Yes (Hospitalization)
  Sender: FDA-Public Use
  Company Number: None

PATIENT
  Age: 66 Year
  Sex: Male

DRUGS (2)
  1. CLOZAPINE 100MG [Suspect]
     Active Substance: CLOZAPINE
     Indication: PSYCHOTIC DISORDER
     Route: 048
     Dates: start: 20180315, end: 20180319
  2. CLOZAPINE 50MG TEVA [Suspect]
     Active Substance: CLOZAPINE
     Indication: PSYCHOTIC DISORDER
     Route: 048
     Dates: start: 20180316, end: 20180319

REACTIONS (5)
  - Atrial fibrillation [None]
  - Tachycardia [None]
  - Oxygen saturation decreased [None]
  - Atrioventricular block [None]
  - Dyspnoea [None]

NARRATIVE: CASE EVENT DATE: 20180319
